FAERS Safety Report 12784476 (Version 1)
Quarter: 2016Q3

REPORT INFORMATION
  Report Type: Report from Study
  Country: GB (occurrence: GB)
  Receive Date: 20160927
  Receipt Date: 20160927
  Transmission Date: 20161109
  Serious: Yes (Life-Threatening, Other)
  Sender: FDA-Public Use
  Company Number: GB-PFIZER INC-2016424246

PATIENT
  Sex: Male
  Weight: 11 kg

DRUGS (9)
  1. GEMTUZUMAB OZOGAMICIN [Suspect]
     Active Substance: GEMTUZUMAB OZOGAMICIN
     Dosage: 1.6 MG, 1X/DAY
     Route: 042
     Dates: start: 20160822, end: 20160822
  2. ALLOPURINOL. [Concomitant]
     Active Substance: ALLOPURINOL
     Indication: PROPHYLAXIS
     Dosage: 50.0 MG, 3X/DAY
     Dates: start: 20160819, end: 20160822
  3. TAZOCIN [Suspect]
     Active Substance: PIPERACILLIN SODIUM\TAZOBACTAM SODIUM
     Dosage: 1.0 G, 4X/DAY
     Route: 042
     Dates: start: 20160826, end: 20160905
  4. AMIKACIN [Concomitant]
     Active Substance: AMIKACIN
     Indication: FEBRILE NEUTROPENIA
     Dosage: 220 MG, 1X/DAY
     Dates: start: 20160826
  5. ONDANSETRON [Concomitant]
     Active Substance: ONDANSETRON
     Indication: ANTIEMETIC SUPPORTIVE CARE
     Dosage: 10.0 MG, 1X/DAY
     Dates: start: 20160822
  6. OMEPRAZOLE. [Concomitant]
     Active Substance: OMEPRAZOLE
     Dosage: 10.0 MG, 1X/DAY
     Dates: start: 20160825, end: 20160830
  7. AMBISOME [Concomitant]
     Active Substance: AMPHOTERICIN B
     Indication: PROPHYLAXIS
     Dosage: 11.0 MG, 1X/DAY
     Dates: start: 20160818
  8. DAUNORUBICIN [Suspect]
     Active Substance: DAUNORUBICIN
     Dosage: 42 MG, (AS PROTOCOL)
     Route: 042
     Dates: start: 20160811, end: 20160823
  9. METHYLPREDNISOLONE. [Concomitant]
     Active Substance: METHYLPREDNISOLONE
     Indication: PYREXIA
     Dosage: 5.0 MG, 1X/DAY
     Dates: start: 20160819, end: 20160825

REACTIONS (2)
  - Febrile neutropenia [Unknown]
  - Hypokalaemia [Recovered/Resolved]

NARRATIVE: CASE EVENT DATE: 20160826
